FAERS Safety Report 19258844 (Version 1)
Quarter: 2021Q2

REPORT INFORMATION
  Report Type: Report from Study
  Country: IT (occurrence: IT)
  Receive Date: 20210514
  Receipt Date: 20210514
  Transmission Date: 20210717
  Serious: Yes (Hospitalization)
  Sender: FDA-Public Use
  Company Number: IT-TEVA-2021-IT-1910338

PATIENT
  Age: 76 Year
  Sex: Male

DRUGS (2)
  1. SIMVASTATIN. [Concomitant]
     Active Substance: SIMVASTATIN
     Indication: HYPERCHOLESTEROLAEMIA
     Dosage: 20MILLIGRAM
     Route: 048
  2. CLOPIDOGREL [Suspect]
     Active Substance: CLOPIDOGREL BISULFATE
     Indication: MYOCARDIAL ISCHAEMIA
     Dosage: 75MILLIGRAM
     Route: 048
     Dates: start: 20210101, end: 20210407

REACTIONS (1)
  - Cerebral haemorrhage [Unknown]

NARRATIVE: CASE EVENT DATE: 20210407
